FAERS Safety Report 7137822-2 (Version None)
Quarter: 2010Q4

REPORT INFORMATION
  Report Type: 
  Country: None (occurrence: None)
  Receive Date: 20101206
  Receipt Date: 20101123
  Transmission Date: 20110411
  Serious: Yes (Hospitalization, Other)
  Sender: FDA-Public Use
  Company Number: GB-NOVOPROD-317925

PATIENT
  Age: 49 Year
  Sex: Female

DRUGS (2)
  1. NOVOLIN 70/30 [Suspect]
     Indication: OFF LABEL USE
  2. PROPRANOLOL [Concomitant]
     Dosage: 6 PROBABLY 10, TAB
     Route: 048
     Dates: start: 19801221

REACTIONS (4)
  - COMA [None]
  - HYPOGLYCAEMIA [None]
  - HYPOGLYCAEMIC COMA [None]
  - INTENTIONAL DRUG MISUSE [None]
